FAERS Safety Report 22072926 (Version 1)
Quarter: 2023Q1

REPORT INFORMATION
  Report Type: Spontaneous
  Country: GB (occurrence: GB)
  Receive Date: 20230308
  Receipt Date: 20230308
  Transmission Date: 20230418
  Serious: Yes (Other)
  Sender: FDA-Public Use
  Company Number: GB-002147023-NVSC2022GB097437

PATIENT

DRUGS (5)
  1. ZOLADEX [Suspect]
     Active Substance: GOSERELIN ACETATE
     Indication: Product used for unknown indication
     Dosage: UNK
     Route: 065
  2. ZOLADEX [Suspect]
     Active Substance: GOSERELIN ACETATE
     Indication: Product used for unknown indication
     Dosage: UNK
     Route: 065
  3. KISQALI [Suspect]
     Active Substance: RIBOCICLIB
     Indication: Metastases to breast
     Dosage: UNK, QD
     Route: 048
     Dates: start: 20220411
  4. KISQALI [Suspect]
     Active Substance: RIBOCICLIB
     Dosage: UNK
     Route: 048
     Dates: start: 202207
  5. LETROZOLE [Suspect]
     Active Substance: LETROZOLE
     Indication: Product used for unknown indication
     Dosage: UNK
     Route: 065

REACTIONS (17)
  - Syncope [Unknown]
  - Hepatic pain [Unknown]
  - Feeling abnormal [Unknown]
  - Rhinorrhoea [Unknown]
  - Lacrimation increased [Unknown]
  - Weight decreased [Unknown]
  - Application site bruise [Unknown]
  - Dizziness [Unknown]
  - Dysuria [Unknown]
  - Fatigue [Not Recovered/Not Resolved]
  - Decreased appetite [Unknown]
  - Breast tenderness [Unknown]
  - Tachycardia [Unknown]
  - Urinary tract infection [Recovered/Resolved]
  - Hot flush [Unknown]
  - Menstruation delayed [Unknown]
  - Breast pain [Unknown]

NARRATIVE: CASE EVENT DATE: 20220626
